FAERS Safety Report 19117590 (Version 2)
Quarter: 2021Q3

REPORT INFORMATION
  Report Type: Spontaneous
  Country: US (occurrence: US)
  Receive Date: 20210410
  Receipt Date: 20210712
  Transmission Date: 20211014
  Serious: No
  Sender: FDA-Public Use
  Company Number: US-BRISTOL-MYERS SQUIBB COMPANY-BMS-2021-034763

PATIENT
  Age: 57 Year
  Sex: Female
  Weight: 76 kg

DRUGS (1)
  1. ORENCIA [Suspect]
     Active Substance: ABATACEPT
     Indication: RHEUMATOID ARTHRITIS
     Dosage: UNK UNK, QWK
     Route: 058
     Dates: start: 202103

REACTIONS (1)
  - Device malfunction [Unknown]

NARRATIVE: CASE EVENT DATE: 20210407
